FAERS Safety Report 16360051 (Version 1)
Quarter: 2019Q2

REPORT INFORMATION
  Report Type: Spontaneous
  Country: US (occurrence: US)
  Receive Date: 20190528
  Receipt Date: 20190528
  Transmission Date: 20190711
  Serious: No
  Sender: FDA-Public Use
  Company Number: US-GLENMARK PHARMACEUTICALS-2019GMK040516

PATIENT

DRUGS (1)
  1. IMIQUIMOD CREAM USP, 5% [Suspect]
     Active Substance: IMIQUIMOD
     Indication: ACTINIC KERATOSIS
     Dosage: UNK, OD (TO APPLY THE PRODUCT ONCE A DAY FOR 5 DAYS WITH 2 DAYS OFF AND FOR ANOTHER 5 DAYS)
     Route: 061
     Dates: start: 2019

REACTIONS (7)
  - Inappropriate schedule of product administration [Unknown]
  - Vision blurred [Not Recovered/Not Resolved]
  - Abdominal distension [Not Recovered/Not Resolved]
  - Weight decreased [Not Recovered/Not Resolved]
  - Application site scab [Not Recovered/Not Resolved]
  - Application site pain [Not Recovered/Not Resolved]
  - Diarrhoea [Not Recovered/Not Resolved]

NARRATIVE: CASE EVENT DATE: 2019
